FAERS Safety Report 19894165 (Version 1)
Quarter: 2021Q3

REPORT INFORMATION
  Report Type: Spontaneous
  Country: US (occurrence: US)
  Receive Date: 20210928
  Receipt Date: 20210928
  Transmission Date: 20211014
  Serious: Yes (Death, Life-Threatening, Other)
  Sender: FDA-Public Use
  Company Number: None

PATIENT
  Age: 28 Year
  Sex: Female
  Weight: 172 kg

DRUGS (3)
  1. DEXAMETHASONE 6MG DAILY [Concomitant]
     Dates: start: 20210921, end: 20210926
  2. VANCOMYCIN [Concomitant]
     Active Substance: VANCOMYCIN
     Dates: start: 20210924, end: 20210926
  3. BARICITINIB. [Suspect]
     Active Substance: BARICITINIB
     Indication: COVID-19
     Dosage: OTHER ROUTE:PER TUBE?
     Dates: start: 20210921, end: 20210926

REACTIONS (3)
  - Pneumonia [None]
  - Streptococcal bacteraemia [None]
  - Vascular device infection [None]

NARRATIVE: CASE EVENT DATE: 20210924
